FAERS Safety Report 6094280-7 (Version None)
Quarter: 2009Q1

REPORT INFORMATION
  Report Type: 
  Country: None (occurrence: None)
  Receive Date: 20090226
  Receipt Date: 20090213
  Transmission Date: 20090719
  Serious: Yes (Hospitalization)
  Sender: FDA-Public Use
  Company Number: FR-ELI_LILLY_AND_COMPANY-FR200902003893

PATIENT
  Sex: Female
  Weight: 87 kg

DRUGS (5)
  1. GEMCITABINE HCL [Suspect]
     Indication: BREAST CANCER METASTATIC
     Dosage: 1000 MG/M2 (ACTUAL DOSE 2000MG), ON D1 AND D8 EVERY 3 WEEKS
     Route: 042
     Dates: start: 20090128
  2. VINFLUNINE [Suspect]
     Indication: BREAST CANCER METASTATIC
     Dosage: 320 MG/M2 (ACTUAL DOSE 637.5MG), ON D1 AND D8 EVERY 3 WEEKS
     Route: 042
     Dates: start: 20090128
  3. PROZAC [Concomitant]
     Indication: DEPRESSION
  4. XANAX [Concomitant]
     Indication: DEPRESSION
  5. FORLAX [Concomitant]
     Indication: CONSTIPATION

REACTIONS (1)
  - FEBRILE BONE MARROW APLASIA [None]
